FAERS Safety Report 23130067 (Version 1)
Quarter: 2023Q4

REPORT INFORMATION
  Report Type: Report from Study
  Country: US (occurrence: US)
  Receive Date: 20231031
  Receipt Date: 20231031
  Transmission Date: 20240110
  Serious: Yes (Other)
  Sender: FDA-Public Use
  Company Number: US-ABBVIE-5470488

PATIENT
  Age: 62 Year
  Sex: Female

DRUGS (3)
  1. COMBIGAN [Suspect]
     Active Substance: BRIMONIDINE TARTRATE\TIMOLOL MALEATE
     Indication: Glaucoma
     Dosage: TWICE A DAY, IN RIGHT EYE
     Route: 065
     Dates: start: 1995
  2. ROCKLATAN [Concomitant]
     Active Substance: LATANOPROST\NETARSUDIL MESYLATE
     Indication: Glaucoma
     Dosage: 1 DROP A DAY IN RIGHT EYE
  3. PREDNISONE [Concomitant]
     Active Substance: PREDNISONE
     Indication: Eye inflammation

REACTIONS (6)
  - Blindness unilateral [Not Recovered/Not Resolved]
  - Eye pain [Unknown]
  - Drug ineffective [Not Recovered/Not Resolved]
  - Eye inflammation [Not Recovered/Not Resolved]
  - Uveitis [Unknown]
  - Vision blurred [Not Recovered/Not Resolved]

NARRATIVE: CASE EVENT DATE: 20170101
